FAERS Safety Report 12246288 (Version 1)
Quarter: 2016Q2

REPORT INFORMATION
  Report Type: Spontaneous
  Country: BG (occurrence: BG)
  Receive Date: 20160407
  Receipt Date: 20160407
  Transmission Date: 20160815
  Serious: Yes (Death, Other)
  Sender: FDA-Public Use
  Company Number: BG-BAYER-2016-064988

PATIENT
  Age: 71 Year
  Sex: Female

DRUGS (1)
  1. NEXAVAR [Suspect]
     Active Substance: SORAFENIB
     Indication: RENAL CELL CARCINOMA
     Dosage: 400 MG, BID
     Route: 048
     Dates: start: 201411, end: 201508

REACTIONS (6)
  - Renal cell carcinoma [Fatal]
  - Metastases to lung [Fatal]
  - Neurological symptom [None]
  - General physical health deterioration [None]
  - Fatigue [None]
  - Metastases to spleen [Fatal]

NARRATIVE: CASE EVENT DATE: 2015
